FAERS Safety Report 14385870 (Version 3)
Quarter: 2018Q1

REPORT INFORMATION
  Report Type: Spontaneous
  Country: JP (occurrence: JP)
  Receive Date: 20180115
  Receipt Date: 20180212
  Transmission Date: 20180509
  Serious: Yes (Other)
  Sender: FDA-Public Use
  Company Number: JP-UCBSA-2018000919

PATIENT
  Age: 22 Year
  Sex: Female

DRUGS (4)
  1. EXCEGRAN [Suspect]
     Active Substance: ZONISAMIDE
     Dosage: 1500 MG, TOTAL
     Route: 048
     Dates: start: 20180101, end: 20180101
  2. E KEPPRA [Suspect]
     Active Substance: LEVETIRACETAM
     Indication: EPILEPSY
     Dosage: 1000 MG A DAY
     Route: 048
     Dates: start: 20170331, end: 20180101
  3. EXCEGRAN [Suspect]
     Active Substance: ZONISAMIDE
     Indication: EPILEPSY
     Dosage: 200 MG A DAY
     Route: 048
     Dates: start: 20170331, end: 20180101
  4. E KEPPRA [Suspect]
     Active Substance: LEVETIRACETAM
     Dosage: 7500 MG, TOTAL
     Route: 048
     Dates: start: 20180101, end: 20180101

REACTIONS (3)
  - Somnolence [Recovered/Resolved]
  - Intentional overdose [Unknown]
  - Epilepsy [Recovered/Resolved]

NARRATIVE: CASE EVENT DATE: 20180101
